FAERS Safety Report 24377228 (Version 2)
Quarter: 2024Q4

REPORT INFORMATION
  Report Type: Spontaneous
  Country: GB (occurrence: GB)
  Receive Date: 20240930
  Receipt Date: 20241231
  Transmission Date: 20250114
  Serious: Yes (Other)
  Sender: AMGEN
  Company Number: GB-Vifor (International) Inc.-VIT-2024-08711

PATIENT
  Age: 80 Year
  Sex: Female
  Weight: 62.65 kg

DRUGS (10)
  1. TAVNEOS [Suspect]
     Active Substance: AVACOPAN
     Indication: Anti-neutrophil cytoplasmic antibody positive vasculitis
     Dosage: 30,MG,QD
     Route: 048
     Dates: start: 20240409, end: 202404
  2. TAVNEOS [Suspect]
     Active Substance: AVACOPAN
     Dosage: UNK
     Route: 065
     Dates: start: 2024
  3. PREDNISOLONE [Concomitant]
     Active Substance: PREDNISOLONE
     Indication: Anti-neutrophil cytoplasmic antibody positive vasculitis
     Dosage: REDUCED TO 30MG WHILE TAKING PAXLOVID FOR COVID-19
     Route: 048
     Dates: start: 20240409, end: 20240415
  4. PREDNISOLONE [Concomitant]
     Active Substance: PREDNISOLONE
     Dosage: WEANING DOSE
     Route: 048
     Dates: start: 20240416, end: 20240421
  5. PREDNISOLONE [Concomitant]
     Active Substance: PREDNISOLONE
     Dosage: COMPLETION OF PLANNED COURSE
     Route: 048
     Dates: start: 20240422, end: 20240428
  6. RITUXIMAB [Concomitant]
     Active Substance: RITUXIMAB
     Indication: Anti-neutrophil cytoplasmic antibody positive vasculitis
     Dosage: SINGLE INFUSION
     Route: 042
     Dates: start: 20240412, end: 20240412
  7. RITUXIMAB [Concomitant]
     Active Substance: RITUXIMAB
     Dosage: SINGLE INFUSION
     Route: 042
     Dates: start: 20240502, end: 20240502
  8. RITUXIMAB [Concomitant]
     Active Substance: RITUXIMAB
     Dosage: SINGLE INFUSION
     Route: 042
     Dates: start: 20241104, end: 20241104
  9. METHYLPREDNISOLONE [Concomitant]
     Active Substance: METHYLPREDNISOLONE
     Indication: Anti-neutrophil cytoplasmic antibody positive vasculitis
     Dosage: SINGLE INFUSION
     Route: 042
     Dates: start: 20240502, end: 20240502
  10. METHYLPREDNISOLONE [Concomitant]
     Active Substance: METHYLPREDNISOLONE
     Dosage: SINGLE INFUSION
     Route: 042
     Dates: start: 20241104, end: 20241104

REACTIONS (3)
  - COVID-19 [Recovered/Resolved]
  - Cellulitis [Recovered/Resolved]
  - Oedema [Recovering/Resolving]

NARRATIVE: CASE EVENT DATE: 20240411
